FAERS Safety Report 18553800 (Version 1)
Quarter: 2020Q4

REPORT INFORMATION
  Report Type: Report from Study
  Country: None (occurrence: CA)
  Receive Date: 20201127
  Receipt Date: 20201127
  Transmission Date: 20210114
  Serious: Yes (Other)
  Sender: FDA-Public Use
  Company Number: CA-ABBVIE-20K-028-3263883-00

PATIENT
  Sex: Male

DRUGS (2)
  1. HUMIRA [Suspect]
     Active Substance: ADALIMUMAB
     Indication: CROHN^S DISEASE
     Route: 058
     Dates: start: 20191029, end: 20191230
  2. HUMIRA [Suspect]
     Active Substance: ADALIMUMAB
     Route: 058
     Dates: start: 2020, end: 202002

REACTIONS (8)
  - Wound [Unknown]
  - Infection [Unknown]
  - Diarrhoea [Unknown]
  - Abscess [Unknown]
  - Volvulus [Unknown]
  - Impaired healing [Unknown]
  - Therapeutic product effect incomplete [Unknown]
  - Fistula [Recovered/Resolved]

NARRATIVE: CASE EVENT DATE: 2019
